FAERS Safety Report 6698705-5 (Version None)
Quarter: 2010Q2

REPORT INFORMATION
  Report Type: 
  Country: None (occurrence: None)
  Receive Date: 20100427
  Receipt Date: 20090318
  Transmission Date: 20101027
  Serious: No
  Sender: FDA-Public Use
  Company Number: US-ASTRAZENECA-2009UW06913

PATIENT
  Age: 46 Year
  Sex: Female

DRUGS (2)
  1. ZOMIG [Suspect]
     Indication: MIGRAINE
     Dosage: USE TWO SPRAYS, 10MG WITHIN 24HRS
     Route: 045
  2. TOPAMAX [Concomitant]
     Dates: start: 20090301

REACTIONS (3)
  - BREAKTHROUGH PAIN [None]
  - INCORRECT DOSE ADMINISTERED [None]
  - MIGRAINE [None]
